FAERS Safety Report 21933190 (Version 1)
Quarter: 2023Q1

REPORT INFORMATION
  Report Type: Spontaneous
  Country: US (occurrence: US)
  Receive Date: 20230131
  Receipt Date: 20230131
  Transmission Date: 20230417
  Serious: Yes (Death, Hospitalization, Other)
  Sender: FDA-Public Use
  Company Number: US-AMGEN-USASP2023013686

PATIENT

DRUGS (4)
  1. FILGRASTIM [Suspect]
     Active Substance: FILGRASTIM
     Indication: Plasma cell myeloma
     Dosage: 5 MILLIGRAM/KILOGRAM, QD, AT DAY +5
     Route: 065
  2. LEVOFLOXACIN [Concomitant]
     Active Substance: LEVOFLOXACIN
     Indication: Prophylaxis
  3. ACYCLOVIR [Concomitant]
     Active Substance: ACYCLOVIR
     Indication: Prophylaxis
  4. FLUCONAZOLE [Concomitant]
     Active Substance: FLUCONAZOLE
     Indication: Prophylaxis

REACTIONS (16)
  - Death [Fatal]
  - Plasma cell myeloma refractory [Unknown]
  - Infection [Unknown]
  - Febrile neutropenia [Unknown]
  - Hypophagia [Unknown]
  - Atrial fibrillation [Unknown]
  - Haemorrhage [Unknown]
  - Cardiovascular disorder [Unknown]
  - Electrolyte imbalance [Unknown]
  - Delayed engraftment [Unknown]
  - Arrhythmia [Unknown]
  - Pain [Unknown]
  - Sepsis [Unknown]
  - Nausea [Unknown]
  - Diarrhoea [Unknown]
  - Vomiting [Unknown]
